FAERS Safety Report 18965218 (Version 2)
Quarter: 2021Q1

REPORT INFORMATION
  Report Type: Spontaneous
  Country: JP (occurrence: JP)
  Receive Date: 20210303
  Receipt Date: 20210324
  Transmission Date: 20210420
  Serious: Yes (Other)
  Sender: FDA-Public Use
  Company Number: JP-EISAI MEDICAL RESEARCH-EC-2021-088673

PATIENT
  Sex: Male
  Weight: 55 kg

DRUGS (6)
  1. LENVIMA [Interacting]
     Active Substance: LENVATINIB
     Route: 048
  2. LENVIMA [Interacting]
     Active Substance: LENVATINIB
     Route: 048
  3. LENVIMA [Interacting]
     Active Substance: LENVATINIB
     Route: 048
  4. DEXAMETHASONE. [Interacting]
     Active Substance: DEXAMETHASONE
     Indication: PRODUCT USED FOR UNKNOWN INDICATION
     Route: 065
  5. LENVIMA [Interacting]
     Active Substance: LENVATINIB
     Route: 048
  6. LENVIMA [Suspect]
     Active Substance: LENVATINIB
     Indication: HEPATOCELLULAR CARCINOMA
     Route: 048

REACTIONS (7)
  - Liver disorder [Recovered/Resolved]
  - Tumour necrosis [Recovering/Resolving]
  - Drug interaction [Recovering/Resolving]
  - Haemorrhagic tumour necrosis [Not Recovered/Not Resolved]
  - Infected neoplasm [Recovering/Resolving]
  - Malaise [Unknown]
  - Decreased appetite [Unknown]
